FAERS Safety Report 24910792 (Version 1)
Quarter: 2025Q1

REPORT INFORMATION
  Report Type: Spontaneous
  Country: FR (occurrence: FR)
  Receive Date: 20250131
  Receipt Date: 20250131
  Transmission Date: 20250409
  Serious: Yes (Hospitalization, Other)
  Sender: MERCK
  Company Number: None

PATIENT
  Age: 72 Year
  Sex: Male

DRUGS (15)
  1. CASPOFUNGIN ACETATE [Suspect]
     Active Substance: CASPOFUNGIN ACETATE
     Indication: Fungaemia
     Route: 042
     Dates: start: 20241006, end: 20241018
  2. PIPERACILLIN SODIUM [Suspect]
     Active Substance: PIPERACILLIN SODIUM
     Indication: Bacteraemia
     Route: 042
     Dates: start: 20241002, end: 20241004
  3. PIPERACILLIN SODIUM [Suspect]
     Active Substance: PIPERACILLIN SODIUM
     Route: 042
     Dates: start: 20241006, end: 20241016
  4. TAZOBACTAM [Suspect]
     Active Substance: TAZOBACTAM
     Indication: Bacteraemia
     Route: 042
     Dates: start: 20241002, end: 20241004
  5. TAZOBACTAM [Suspect]
     Active Substance: TAZOBACTAM
     Route: 042
     Dates: start: 20241006, end: 20241016
  6. AMOXICILLIN [Suspect]
     Active Substance: AMOXICILLIN
     Indication: Bacteraemia
     Route: 042
     Dates: start: 20241004, end: 20241006
  7. CLAVULANIC ACID [Suspect]
     Active Substance: CLAVULANIC ACID
     Indication: Bacteraemia
     Route: 042
     Dates: start: 20241004, end: 20241006
  8. ACEBUTOLOL [Concomitant]
     Active Substance: ACEBUTOLOL
  9. KARDEGIC [Concomitant]
     Active Substance: ASPIRIN DL-LYSINE
  10. FUROSEMIDE [Concomitant]
     Active Substance: FUROSEMIDE
  11. MIRTAZAPINE [Concomitant]
     Active Substance: MIRTAZAPINE
  12. PANTOPRAZOLE [Concomitant]
     Active Substance: PANTOPRAZOLE
  13. PERINDOPRIL [Concomitant]
     Active Substance: PERINDOPRIL
  14. MELATONIN [Concomitant]
     Active Substance: MELATONIN
  15. ELIQUIS [Concomitant]
     Active Substance: APIXABAN

REACTIONS (1)
  - Cholestasis [Recovering/Resolving]

NARRATIVE: CASE EVENT DATE: 20241016
